FAERS Safety Report 8166580-8 (Version None)
Quarter: 2012Q1

REPORT INFORMATION
  Report Type: 
  Country: None (occurrence: None)
  Receive Date: 20120227
  Receipt Date: 20120222
  Transmission Date: 20120608
  Serious: Yes (Hospitalization, Other)
  Sender: FDA-Public Use
  Company Number: US-BAYER-2011-090628

PATIENT
  Age: 73 Year
  Sex: Male
  Weight: 93.424 kg

DRUGS (18)
  1. NEXAVAR [Suspect]
     Indication: HEPATIC NEOPLASM MALIGNANT
     Dosage: 400 MG, BID
     Route: 048
     Dates: start: 20110803
  2. GLYBURIDE [Concomitant]
     Dosage: 5 MG AS DIRECTED
  3. METFORMIN HCL [Concomitant]
     Dosage: 1000 MG, BID (WITH MEALS)
     Route: 048
  4. LISINOPRILHYDROCHLOROTHIAZIDE RATIOPHARM [Concomitant]
     Dosage: 20-25MG 1 TABLET DAILY
     Route: 048
  5. FAMOTIDINE [Concomitant]
     Dosage: 20 MG, BID
     Route: 048
  6. COUMADIN [Concomitant]
  7. ALPRAZOLAM [Concomitant]
     Dosage: 0.25 MG, QID (Q 6HRS PRN)
     Route: 048
  8. LASIX [Concomitant]
     Dosage: 10 MG, QD
     Route: 048
  9. NEXAVAR [Suspect]
     Dosage: 400 MG, BID
     Route: 048
     Dates: start: 20110728, end: 20110101
  10. CARVEDILOL [Concomitant]
     Dosage: 12.5 MG, BID (WITH FOOD)
     Route: 048
  11. ENOXAPARIN SODIUM [Concomitant]
     Dosage: 100 MG, BID (Q12HR)
     Route: 058
  12. LIPITOR [Concomitant]
     Dosage: 20 MG, QD
     Route: 048
  13. REGLAN [Concomitant]
     Dosage: 5 MG, QID (30MIN BEFORE MEALS AND AT BEDTIME)
     Route: 048
     Dates: start: 20110915
  14. ACETAMINOPHEN [Concomitant]
     Dosage: 325 MG 1-2 TABLETS Q4HR PRN
     Route: 048
  15. ENOXAPARIN SODIUM [Concomitant]
     Dosage: 90 MG, QD
  16. NEXAVAR [Suspect]
     Dosage: 200 MG, BID
  17. TAMSULOSIN HCL [Concomitant]
     Dosage: 0.4 MG, QD (1/2 HR FOLLOWING SAME MEAL EACH DAY)
     Route: 048
  18. ASPIRIN [Concomitant]
     Dosage: 81 MG, QD
     Route: 048

REACTIONS (16)
  - SYNCOPE [None]
  - FALL [None]
  - ABDOMINAL DISTENSION [None]
  - ABDOMINAL PAIN [None]
  - SKIN NECROSIS [None]
  - CONTUSION [None]
  - DIABETES MELLITUS [None]
  - DEHYDRATION [None]
  - NAUSEA [None]
  - DIARRHOEA [None]
  - CONSTIPATION [None]
  - HYPERTENSION [None]
  - CARDIAC DISORDER [None]
  - HYPOGLYCAEMIA [None]
  - EPISTAXIS [None]
  - WAIST CIRCUMFERENCE INCREASED [None]
